FAERS Safety Report 6150449-4 (Version None)
Quarter: 2009Q2

REPORT INFORMATION
  Report Type: 
  Country: None (occurrence: None)
  Receive Date: 20090409
  Receipt Date: 20090331
  Transmission Date: 20091009
  Serious: Yes (Other)
  Sender: FDA-Public Use
  Company Number: PHHY2009IE11314

PATIENT
  Sex: Female

DRUGS (2)
  1. CLOZARIL [Suspect]
     Indication: SCHIZOPHRENIA
     Dosage: 350MG DAILY
     Dates: start: 19950928
  2. CRESTOR [Concomitant]
     Dosage: UNK

REACTIONS (3)
  - BREAST CANCER [None]
  - DRUG LEVEL [None]
  - SALIVARY HYPERSECRETION [None]
